FAERS Safety Report 5105825-5 (Version None)
Quarter: 2006Q3

REPORT INFORMATION
  Report Type: 
  Country: None (occurrence: None)
  Receive Date: 20060915
  Receipt Date: 20060901
  Transmission Date: 20061208
  Serious: Yes (Hospitalization, Disabling)
  Sender: FDA-Public Use
  Company Number: US-JNJFOC-20060701052

PATIENT
  Sex: Female
  Weight: 47.63 kg

DRUGS (4)
  1. ORTHO EVRA [Suspect]
     Indication: MENSTRUAL DISORDER
     Route: 062
  2. ORTHO EVRA [Suspect]
     Indication: CONTRACEPTION
     Route: 062
  3. HUMULIN 70/30 [Concomitant]
     Indication: DIABETES MELLITUS INSULIN-DEPENDENT
  4. HUMULIN N [Concomitant]
     Indication: DIABETES MELLITUS INSULIN-DEPENDENT

REACTIONS (8)
  - DIABETIC KETOACIDOSIS [None]
  - ENCEPHALOPATHY [None]
  - GASTRITIS [None]
  - INTRACRANIAL VENOUS SINUS THROMBOSIS [None]
  - LUNG INFECTION PSEUDOMONAL [None]
  - PARONYCHIA [None]
  - STAPHYLOCOCCAL SEPSIS [None]
  - VOMITING [None]
